FAERS Safety Report 4509748-1 (Version None)
Quarter: 2004Q4

REPORT INFORMATION
  Report Type: 
  Country: None (occurrence: None)
  Receive Date: 20041124
  Receipt Date: 20031007
  Transmission Date: 20050328
  Serious: No
  Sender: FDA-Public Use
  Company Number: US-BRISTOL-MYERS SQUIBB COMPANY-12407060

PATIENT
  Sex: Female

DRUGS (1)
  1. AVALIDE [Suspect]

REACTIONS (2)
  - OROPHARYNGEAL SWELLING [None]
  - SWOLLEN TONGUE [None]
